FAERS Safety Report 19856547 (Version 1)
Quarter: 2021Q3

REPORT INFORMATION
  Report Type: Spontaneous
  Country: US (occurrence: US)
  Receive Date: 20210920
  Receipt Date: 20210920
  Transmission Date: 20211014
  Serious: Yes (Other)
  Sender: FDA-Public Use
  Company Number: US-ROCHE-2914278

PATIENT
  Sex: Male

DRUGS (1)
  1. HEMLIBRA [Suspect]
     Active Substance: EMICIZUMAB-KXWH
     Indication: HEREDITARY DISORDER
     Dosage: STRENGTH: 60MG/0.4ML?DOSE: 1.52ML/228MG
     Route: 058
     Dates: start: 20210723

REACTIONS (1)
  - Haemorrhage [Recovered/Resolved]
